FAERS Safety Report 6436939-5 (Version None)
Quarter: 2009Q4

REPORT INFORMATION
  Report Type: 
  Country: None (occurrence: None)
  Receive Date: 20091111
  Receipt Date: 20091030
  Transmission Date: 20100525
  Serious: Yes (Other)
  Sender: FDA-Public Use
  Company Number: CA-JNJCH-2009028879

PATIENT
  Sex: Female

DRUGS (1)
  1. VISINE (UNSPECIFIED) [Suspect]
     Indication: DRUG USE FOR UNKNOWN INDICATION
     Dosage: TEXT:UNSPECIFIED
     Route: 047

REACTIONS (3)
  - ABNORMAL SENSATION IN EYE [None]
  - BLINDNESS [None]
  - EYE BURNS [None]
